FAERS Safety Report 21360345 (Version 3)
Quarter: 2022Q4

REPORT INFORMATION
  Report Type: Spontaneous
  Country: US (occurrence: US)
  Receive Date: 20220921
  Receipt Date: 20221025
  Transmission Date: 20230112
  Serious: Yes (Other)
  Sender: FDA-Public Use
  Company Number: US-BAYER-2022A128190

PATIENT
  Age: 25 Year
  Sex: Male

DRUGS (2)
  1. KOVALTRY [Suspect]
     Active Substance: ANTIHEMOPHILIC FACTOR, HUMAN RECOMBINANT
     Dosage: 5000 IU
  2. KOVALTRY [Suspect]
     Active Substance: ANTIHEMOPHILIC FACTOR, HUMAN RECOMBINANT
     Dosage: 3 BOXES OF FACTOR 3 TIMES (6000 IU) TO TREAT RIGHT ANKLE BLEED
     Dates: start: 20220911

REACTIONS (3)
  - Haemorrhage [Recovered/Resolved]
  - Intentional product use issue [Recovered/Resolved]
  - Drug effect less than expected [None]

NARRATIVE: CASE EVENT DATE: 20220911
